FAERS Safety Report 20696315 (Version 7)
Quarter: 2023Q1

REPORT INFORMATION
  Report Type: Spontaneous
  Country: US (occurrence: US)
  Receive Date: 20220411
  Receipt Date: 20230120
  Transmission Date: 20230417
  Serious: Yes (Hospitalization)
  Sender: FDA-Public Use
  Company Number: US-PFIZER INC-202200010469

PATIENT
  Age: 78 Year
  Sex: Female

DRUGS (1)
  1. IBRANCE [Suspect]
     Active Substance: PALBOCICLIB
     Indication: Breast cancer female
     Dosage: 100 MG [TAKE 1 TAB]
     Dates: start: 20220104

REACTIONS (8)
  - Gallbladder operation [Unknown]
  - Solar lentigo [Unknown]
  - Dyspnoea exertional [Unknown]
  - Oropharyngeal discomfort [Unknown]
  - COVID-19 [Unknown]
  - Blood pressure increased [Unknown]
  - Hot flush [Unknown]
  - Inappropriate schedule of product administration [Unknown]

NARRATIVE: CASE EVENT DATE: 20220101
